FAERS Safety Report 7942295-3 (Version None)
Quarter: 2011Q4

REPORT INFORMATION
  Report Type: 
  Country: None (occurrence: None)
  Receive Date: 20111128
  Receipt Date: 20111108
  Transmission Date: 20120403
  Serious: No
  Sender: FDA-Public Use
  Company Number: US-ABBOTT-11P-163-0873640-00

PATIENT
  Age: 78 Year
  Sex: Male
  Weight: 67.192 kg

DRUGS (1)
  1. ANDROGEL [Suspect]
     Indication: BLOOD TESTOSTERONE DECREASED
     Dosage: 2 PUMPS, ONCE DAILY
     Route: 061
     Dates: start: 20111103, end: 20111108

REACTIONS (1)
  - DIARRHOEA [None]
